FAERS Safety Report 16615520 (Version 1)
Quarter: 2019Q3

REPORT INFORMATION
  Report Type: Spontaneous
  Country: DE (occurrence: DE)
  Receive Date: 20190723
  Receipt Date: 20190723
  Transmission Date: 20191004
  Serious: No
  Sender: FDA-Public Use
  Company Number: DE-BEH-2019104608

PATIENT

DRUGS (1)
  1. FIBROGAMMIN P [Suspect]
     Active Substance: FACTOR XIII CONCENTRATE (HUMAN)
     Route: 065

REACTIONS (3)
  - No adverse event [Unknown]
  - Device issue [Unknown]
  - Product reconstitution quality issue [Unknown]
